FAERS Safety Report 9477985 (Version 1)
Quarter: 2013Q3

REPORT INFORMATION
  Report Type: Spontaneous
  Country: US (occurrence: None)
  Receive Date: 20130826
  Receipt Date: 20130826
  Transmission Date: 20140515
  Serious: Yes (Hospitalization)
  Sender: FDA-Public Use
  Company Number: None

PATIENT
  Age: 78 Year
  Sex: Female
  Weight: 70 kg

DRUGS (1)
  1. CISPLATIN [Suspect]
     Dosage: CISPLATIN 50 MG/M2 IV DAYS1 + 20 PLUS ^VOLUME-DIRECTED RADIATION THERAPY FOLLOWED BY CARBOPLATINAUC5
     Route: 042

REACTIONS (5)
  - Hyponatraemia [None]
  - Hypokalaemia [None]
  - Hypotension [None]
  - Pancytopenia [None]
  - Atrial fibrillation [None]
